FAERS Safety Report 25564783 (Version 1)
Quarter: 2025Q3

REPORT INFORMATION
  Report Type: Spontaneous
  Country: US (occurrence: None)
  Receive Date: 20250715
  Receipt Date: 20250715
  Transmission Date: 20251020
  Serious: Yes (Hospitalization)
  Sender: FDA-CTU
  Company Number: None

PATIENT
  Sex: Male

DRUGS (7)
  1. PULMOZYME [Suspect]
     Active Substance: DORNASE ALFA
     Indication: Cystic fibrosis
     Dosage: FREQUENCY : DAILY;?
     Route: 055
  2. TOBI 300MG/5ML NEBULZR SOL 56 X SML [Concomitant]
  3. ENOXAPARIN 40MG/0.4ML SYR(1 0X0.4ML) [Concomitant]
  4. CIPROFLOXACIN [Concomitant]
     Active Substance: CIPROFLOXACIN
  5. ALBUTEROL 0.083%(2.5MG/3ML) INH SOL [Concomitant]
  6. BUDESONIDE 0.5MG/2ML VIALS 2ML [Concomitant]
  7. XARELTO 1 MG/ML ORAL SUSP 155ML [Concomitant]

REACTIONS (1)
  - Hospitalisation [None]
